FAERS Safety Report 9213110 (Version 1)
Quarter: 2013Q2

REPORT INFORMATION
  Report Type: Spontaneous
  Country: US (occurrence: US)
  Receive Date: 20130405
  Receipt Date: 20130405
  Transmission Date: 20140414
  Serious: No
  Sender: FDA-Public Use
  Company Number: US-PFIZER INC-2013104726

PATIENT
  Age: 76 Year
  Sex: Male
  Weight: 113 kg

DRUGS (5)
  1. TIKOSYN [Suspect]
     Indication: ARRHYTHMIA
     Dosage: 0.25 MG, TWO TIMES A DAY
     Route: 048
  2. TIKOSYN [Suspect]
     Indication: HEART RATE DECREASED
  3. LISINOPRIL [Concomitant]
     Indication: HYPERTENSION
     Dosage: 20 MG, 2 TIMES A DAY
  4. ASPIRIN [Concomitant]
     Dosage: UNK
  5. COUMADINE [Concomitant]
     Dosage: UNK

REACTIONS (2)
  - Arthralgia [Unknown]
  - Procedural pain [Unknown]
